FAERS Safety Report 5847705-3 (Version None)
Quarter: 2008Q3

REPORT INFORMATION
  Report Type: 
  Country: None (occurrence: None)
  Receive Date: 20080814
  Receipt Date: 20080808
  Transmission Date: 20090109
  Serious: Yes (Death, Hospitalization)
  Sender: FDA-Public Use
  Company Number: CERZ-1000315

PATIENT
  Age: 29 Day
  Sex: Male
  Weight: 3 kg

DRUGS (1)
  1. CEREZYME [Suspect]
     Indication: GAUCHER'S DISEASE
     Dosage: 200 IU, INTRAVENOUS
     Route: 042
     Dates: start: 20080207, end: 20080219

REACTIONS (2)
  - NEONATAL RESPIRATORY FAILURE [None]
  - RENAL FAILURE NEONATAL [None]
